FAERS Safety Report 16787373 (Version 5)
Quarter: 2019Q4

REPORT INFORMATION
  Report Type: Report from Study
  Country: JP (occurrence: JP)
  Receive Date: 20190909
  Receipt Date: 20191029
  Transmission Date: 20200122
  Serious: Yes (Death, Life-Threatening, Hospitalization, Other)
  Sender: FDA-Public Use
  Company Number: JP-JNJFOC-20190805218

PATIENT
  Age: 13 Year
  Sex: Male
  Weight: 25.3 kg

DRUGS (74)
  1. TOLVAPTAN [Concomitant]
     Active Substance: TOLVAPTAN
     Indication: GENERALISED OEDEMA
     Route: 048
     Dates: start: 20190413, end: 20190904
  2. LANSOPRAZOLE. [Concomitant]
     Active Substance: LANSOPRAZOLE
     Indication: CHRONIC GASTRITIS
     Route: 048
     Dates: start: 20190330, end: 20190816
  3. ATROPINE SULPHATE [Concomitant]
     Active Substance: ATROPINE SULFATE
     Indication: GENERAL ANAESTHESIA
     Dosage: FRQUENCY: ONCE
     Route: 042
     Dates: start: 20190713, end: 20190723
  4. MAGNESIUM SULFATE. [Concomitant]
     Active Substance: MAGNESIUM SULFATE
     Route: 042
     Dates: start: 20190827, end: 20190827
  5. ATARAX [Concomitant]
     Active Substance: HYDROXYZINE HYDROCHLORIDE
     Indication: INSOMNIA
     Route: 042
     Dates: start: 20190823, end: 20190823
  6. VOLVIX [Concomitant]
     Indication: CHRONIC GRAFT VERSUS HOST DISEASE
     Route: 042
     Dates: start: 20190826, end: 20190904
  7. ZINC OXIDE. [Concomitant]
     Active Substance: ZINC OXIDE
     Indication: CHRONIC GRAFT VERSUS HOST DISEASE
     Route: 061
     Dates: start: 20190901, end: 20190904
  8. IBRUTINIB [Suspect]
     Active Substance: IBRUTINIB
     Route: 048
     Dates: start: 20190716, end: 20190724
  9. IBRUTINIB [Suspect]
     Active Substance: IBRUTINIB
     Route: 048
     Dates: start: 20190524, end: 20190617
  10. SEPAMIT [Concomitant]
     Active Substance: NIFEDIPINE
     Dosage: FINE GRANULES
     Route: 048
     Dates: start: 20190814, end: 20190823
  11. PREDNISOLONE. [Concomitant]
     Active Substance: PREDNISOLONE
     Dates: start: 20190408, end: 20190507
  12. ALBUMIN [Concomitant]
     Active Substance: ALBUMIN HUMAN
     Dosage: DOSE: 0.86 VIAL
     Route: 042
     Dates: start: 20190820, end: 20190820
  13. KETALAR [Concomitant]
     Active Substance: KETAMINE HYDROCHLORIDE
     Indication: GENERAL ANAESTHESIA
     Dosage: FREQUENCY: ONCE
     Route: 042
     Dates: start: 20190723, end: 20190723
  14. ATROPINE SULPHATE [Concomitant]
     Active Substance: ATROPINE SULFATE
     Dosage: FRQUENCY: ONCE
     Route: 042
     Dates: start: 20190825, end: 20190825
  15. GLYCERINE [Concomitant]
     Active Substance: GLYCERIN
     Indication: CONSTIPATION
     Route: 061
     Dates: start: 20190821, end: 20190821
  16. VFEND [Concomitant]
     Active Substance: VORICONAZOLE
     Indication: INFECTION PROPHYLAXIS
     Route: 048
     Dates: start: 20190824, end: 20190904
  17. IBRUTINIB [Suspect]
     Active Substance: IBRUTINIB
     Dosage: DOSE DECREASED DUE TO START OF CYP3A INHIBITOR.
     Route: 048
     Dates: start: 20190725, end: 20190814
  18. ALBUMIN [Concomitant]
     Active Substance: ALBUMIN HUMAN
     Indication: GENERALISED OEDEMA
     Dosage: DOSE: 0.97 VIAL
     Route: 042
     Dates: start: 20190723, end: 20190723
  19. ALBUMIN [Concomitant]
     Active Substance: ALBUMIN HUMAN
     Dosage: DOSE: 0.77 VIAL
     Route: 042
     Dates: start: 20190803, end: 20190803
  20. AZUNOL [Concomitant]
     Indication: CHRONIC GRAFT VERSUS HOST DISEASE
     Route: 061
     Dates: start: 20190825, end: 20190904
  21. HEPARINOID [Concomitant]
     Active Substance: CHONDROITIN SULFATE (BOVINE)
     Indication: CHRONIC GRAFT VERSUS HOST DISEASE
     Route: 061
     Dates: start: 20190403, end: 20190904
  22. FLUMETHOLON [Concomitant]
     Active Substance: FLUOROMETHOLONE
     Indication: CONJUNCTIVITIS
     Route: 061
     Dates: start: 20190710, end: 20190904
  23. EMLA [Concomitant]
     Active Substance: LIDOCAINE\PRILOCAINE
     Indication: PROPHYLAXIS
     Dosage: LOCAL ANAESTHESIA FOR SUBCUTANEOUS INJECTION
     Route: 061
     Dates: start: 20190618, end: 20190618
  24. MINIPRESS [Concomitant]
     Active Substance: PRAZOSIN HYDROCHLORIDE
     Indication: HYPERTENSION
     Dates: start: 20190531, end: 20190721
  25. ALBUMIN [Concomitant]
     Active Substance: ALBUMIN HUMAN
     Route: 042
     Dates: start: 20190817
  26. XYLOCAINE [Concomitant]
     Active Substance: LIDOCAINE HYDROCHLORIDE
     Indication: LOCAL ANAESTHESIA
     Dosage: FREQUENCY: ONCE
     Route: 042
     Dates: start: 20190723, end: 20190723
  27. MIDAZOLAM [Concomitant]
     Active Substance: MIDAZOLAM HYDROCHLORIDE
     Route: 042
     Dates: start: 20190825, end: 20190825
  28. MIDAZOLAM [Concomitant]
     Active Substance: MIDAZOLAM HYDROCHLORIDE
     Route: 042
     Dates: start: 20190827, end: 20190904
  29. OMEPRAZOLE. [Concomitant]
     Active Substance: OMEPRAZOLE
     Route: 042
     Dates: start: 20190824, end: 20190904
  30. FLUMAZENIL. [Concomitant]
     Active Substance: FLUMAZENIL
     Indication: GENERAL ANAESTHESIA
     Route: 042
     Dates: start: 20190819, end: 20190819
  31. TRAZODONE [Concomitant]
     Active Substance: TRAZODONE HYDROCHLORIDE
     Indication: INSOMNIA
     Route: 048
     Dates: start: 20190823, end: 20190823
  32. MAGNESIUM SULFATE. [Concomitant]
     Active Substance: MAGNESIUM SULFATE
     Route: 042
     Dates: start: 20190828, end: 20190902
  33. IBRUTINIB [Suspect]
     Active Substance: IBRUTINIB
     Route: 048
     Dates: start: 20190815, end: 20190820
  34. PRAVASTATIN NA [Concomitant]
     Active Substance: PRAVASTATIN SODIUM
     Indication: HYPERLIPIDAEMIA
     Route: 048
     Dates: start: 20190302, end: 20190816
  35. BECLOMETASONE [Concomitant]
     Active Substance: BECLOMETHASONE DIPROPIONATE
     Indication: CHRONIC GRAFT VERSUS HOST DISEASE
     Route: 048
     Dates: start: 20181006, end: 20190904
  36. LEVOFLOXACIN. [Concomitant]
     Active Substance: LEVOFLOXACIN
     Indication: CONJUNCTIVITIS
     Route: 061
     Dates: start: 20190710, end: 20190904
  37. DEXALTIN [Concomitant]
     Active Substance: DEXAMETHASONE
     Indication: STOMATITIS
     Route: 061
     Dates: start: 20190625
  38. LASIX [Concomitant]
     Active Substance: FUROSEMIDE
     Dosage: FREQUENCY: AS NECESSARY
     Route: 042
     Dates: start: 20190802, end: 20190814
  39. PREDNISOLONE. [Concomitant]
     Active Substance: PREDNISOLONE
     Dates: start: 20190131, end: 20190407
  40. PREDNISOLONE. [Concomitant]
     Active Substance: PREDNISOLONE
     Route: 048
     Dates: start: 20190816, end: 20190826
  41. OMEPRAZOLE. [Concomitant]
     Active Substance: OMEPRAZOLE
     Indication: CHRONIC GASTRITIS
     Route: 042
     Dates: start: 20190815, end: 20190823
  42. POLYGLOBIN [Concomitant]
     Active Substance: HUMAN IMMUNOGLOBULIN G
     Indication: INFECTION
     Route: 042
     Dates: start: 20190821, end: 20190821
  43. IBRUTINIB [Suspect]
     Active Substance: IBRUTINIB
     Indication: CHRONIC GRAFT VERSUS HOST DISEASE
     Route: 048
     Dates: start: 20190424, end: 20190820
  44. IBRUTINIB [Suspect]
     Active Substance: IBRUTINIB
     Route: 048
     Dates: start: 20190501, end: 20190523
  45. URSODEOXYCHOLIC ACID [Concomitant]
     Active Substance: URSODIOL
     Indication: CHRONIC HEPATITIS
     Route: 048
     Dates: start: 20190408, end: 20190816
  46. MIDAZOLAM [Concomitant]
     Active Substance: MIDAZOLAM HYDROCHLORIDE
     Indication: GENERAL ANAESTHESIA
     Dosage: FREQUENCY: ONCE
     Route: 042
     Dates: start: 20190723, end: 20190723
  47. MIDAZOLAM [Concomitant]
     Active Substance: MIDAZOLAM HYDROCHLORIDE
     Route: 042
     Dates: start: 20190819
  48. DECADRON [Concomitant]
     Active Substance: DEXAMETHASONE
     Indication: CHRONIC GRAFT VERSUS HOST DISEASE
     Route: 065
     Dates: start: 20190606, end: 20190701
  49. MAGNESIUM OXIDE. [Concomitant]
     Active Substance: MAGNESIUM OXIDE
     Indication: CONSTIPATION
     Route: 048
     Dates: start: 20190418, end: 20190427
  50. MEYLON [Concomitant]
     Active Substance: SODIUM BICARBONATE
     Indication: GENERALISED OEDEMA
     Route: 042
     Dates: start: 20190825, end: 20190825
  51. OTSUKA MV [Concomitant]
     Indication: CHRONIC GRAFT VERSUS HOST DISEASE
     Dosage: 0.8 VIAL
     Route: 042
     Dates: start: 20190826, end: 20190904
  52. FLAVITAN [Concomitant]
     Active Substance: FLAVIN ADENINE DINUCLEOTIDE
     Indication: CONJUNCTIVITIS
     Route: 061
     Dates: start: 20190901, end: 20190904
  53. CANDESARTAN. [Concomitant]
     Active Substance: CANDESARTAN
     Indication: HYPERTENSION
     Route: 048
     Dates: start: 20181025, end: 20190826
  54. POLYGLOBIN [Concomitant]
     Active Substance: HUMAN IMMUNOGLOBULIN G
     Route: 042
     Dates: start: 20190411, end: 20190830
  55. FEBURIC [Concomitant]
     Active Substance: FEBUXOSTAT
     Indication: HYPERURICAEMIA
     Route: 048
     Dates: start: 20190415, end: 20190816
  56. LASIX [Concomitant]
     Active Substance: FUROSEMIDE
     Indication: GENERALISED OEDEMA
     Route: 042
     Dates: start: 20180709, end: 20190825
  57. PREDNISOLONE. [Concomitant]
     Active Substance: PREDNISOLONE
     Indication: CHRONIC GRAFT VERSUS HOST DISEASE
     Route: 048
     Dates: start: 20190508, end: 20190815
  58. KETALAR [Concomitant]
     Active Substance: KETAMINE HYDROCHLORIDE
     Dosage: FREQUENCY: ONCE
     Route: 042
     Dates: start: 20190825, end: 20190825
  59. EPISIL [Concomitant]
     Indication: STOMATITIS
     Route: 061
     Dates: start: 20190719
  60. SYMPROIC [Concomitant]
     Active Substance: NALDEMEDINE
     Indication: CONSTIPATION
     Route: 048
     Dates: start: 20190820, end: 20190904
  61. CANCIDAS [Concomitant]
     Active Substance: CASPOFUNGIN ACETATE
     Indication: INFECTION
     Route: 042
     Dates: start: 20190824, end: 20190904
  62. PREDONINE [Concomitant]
     Active Substance: PREDNISOLONE
     Indication: CHRONIC GRAFT VERSUS HOST DISEASE
     Route: 042
     Dates: start: 20190827, end: 20190904
  63. IBRUTINIB [Suspect]
     Active Substance: IBRUTINIB
     Route: 048
     Dates: start: 20190425, end: 20190430
  64. IBRUTINIB [Suspect]
     Active Substance: IBRUTINIB
     Route: 048
     Dates: start: 20190618, end: 20190715
  65. EPADEL                             /01682402/ [Concomitant]
     Active Substance: ICOSAPENT ETHYL
     Indication: HYPERLIPIDAEMIA
     Route: 048
     Dates: start: 20190302, end: 20190816
  66. SEPAMIT [Concomitant]
     Active Substance: NIFEDIPINE
     Indication: HYPERTENSION
     Dosage: FINE GRANULES
     Route: 048
     Dates: start: 20190411
  67. DAIPHEN [Concomitant]
     Active Substance: SULFAMETHOXAZOLE\TRIMETHOPRIM
     Indication: INFECTION PROPHYLAXIS
     Route: 048
     Dates: start: 20190422, end: 20190904
  68. ALFAROL [Concomitant]
     Active Substance: ALFACALCIDOL
     Indication: RICKETS
     Route: 048
     Dates: start: 20190426, end: 20190816
  69. MIRCERA [Concomitant]
     Active Substance: METHOXY POLYETHYLENE GLYCOL-EPOETIN BETA
     Indication: ANAEMIA
     Route: 058
     Dates: start: 20190702, end: 20190802
  70. ALBUMIN [Concomitant]
     Active Substance: ALBUMIN HUMAN
     Route: 042
     Dates: start: 20190825, end: 20190903
  71. CARBOCISTEINE [Concomitant]
     Active Substance: CARBOCYSTEINE
     Indication: RESPIRATORY TRACT INFECTION
     Route: 048
     Dates: start: 20190725, end: 20190809
  72. PROPETO [Concomitant]
     Active Substance: PETROLATUM
     Indication: CHRONIC GRAFT VERSUS HOST DISEASE
     Route: 061
     Dates: start: 20190823, end: 20190904
  73. MAGNESIUM SULFATE. [Concomitant]
     Active Substance: MAGNESIUM SULFATE
     Indication: HYPOMAGNESAEMIA
     Route: 042
     Dates: start: 20190823, end: 20190823
  74. ESLAX [Concomitant]
     Active Substance: ROCURONIUM BROMIDE
     Indication: GENERAL ANAESTHESIA
     Dosage: 0.8 VIAL
     Route: 042
     Dates: start: 20190825, end: 20190825

REACTIONS (5)
  - Diabetes mellitus [Not Recovered/Not Resolved]
  - Hyperkalaemia [Recovered/Resolved]
  - Multiple organ dysfunction syndrome [Fatal]
  - Pneumonia [Not Recovered/Not Resolved]
  - Bronchiolitis [Recovered/Resolved]

NARRATIVE: CASE EVENT DATE: 20190802
